FAERS Safety Report 13565185 (Version 1)
Quarter: 2017Q2

REPORT INFORMATION
  Report Type: Report from Study
  Country: IT (occurrence: IT)
  Receive Date: 20170519
  Receipt Date: 20170519
  Transmission Date: 20170830
  Serious: Yes (Death, Other)
  Sender: FDA-Public Use
  Company Number: IT-MYLANLABS-2017M1029856

PATIENT

DRUGS (7)
  1. LOPRESSOR [Concomitant]
     Active Substance: METOPROLOL TARTRATE
     Indication: HYPERTENSION
     Dosage: 200 MG, UNK
     Route: 048
     Dates: start: 20170123, end: 20170422
  2. COUMADIN [Concomitant]
     Active Substance: WARFARIN SODIUM
     Indication: ATRIAL FIBRILLATION
     Dosage: 1 DF, UNK
     Route: 048
  3. DILZENE [Suspect]
     Active Substance: DILTIAZEM HYDROCHLORIDE
     Indication: ATRIAL FIBRILLATION
     Dosage: 120 MG DAILY
     Route: 048
     Dates: start: 20170121, end: 20170422
  4. XANAX [Concomitant]
     Active Substance: ALPRAZOLAM
     Indication: ANXIETY
     Dosage: 1 DF, UNK
     Route: 048
     Dates: start: 20170123, end: 20170422
  5. KCL-RETARD [Concomitant]
     Active Substance: POTASSIUM CHLORIDE
     Indication: HYPERTENSION
     Dosage: 600 MG, UNK
     Route: 048
     Dates: start: 20170123, end: 20170422
  6. DIAZEPAM. [Suspect]
     Active Substance: DIAZEPAM
     Indication: ANXIETY
     Dosage: 200 MG, QD
     Route: 048
     Dates: start: 20170421, end: 20170422
  7. LASIX [Concomitant]
     Active Substance: FUROSEMIDE
     Indication: HYPERTENSION
     Dosage: 50 MG, UNK
     Route: 048
     Dates: start: 20170123, end: 20170422

REACTIONS (7)
  - Back pain [Unknown]
  - Abdominal pain [Unknown]
  - Drug use disorder [Fatal]
  - Accidental overdose [Unknown]
  - Respiratory arrest [Fatal]
  - Dyspnoea [Unknown]
  - Unevaluable event [Unknown]

NARRATIVE: CASE EVENT DATE: 20170422
